FAERS Safety Report 7014904-7 (Version None)
Quarter: 2010Q3

REPORT INFORMATION
  Report Type: 
  Country: None (occurrence: None)
  Receive Date: 20100927
  Receipt Date: 20100804
  Transmission Date: 20110219
  Serious: No
  Sender: FDA-Public Use
  Company Number: US-ASTRAZENECA-2010SE36475

PATIENT
  Sex: Female
  Weight: 108.9 kg

DRUGS (3)
  1. ARIMIDEX [Suspect]
     Route: 048
     Dates: start: 20100101, end: 20100101
  2. CELEBREX [Concomitant]
  3. CYMBALTA [Concomitant]

REACTIONS (2)
  - ARTHRALGIA [None]
  - GAIT DISTURBANCE [None]
